FAERS Safety Report 17966381 (Version 2)
Quarter: 2020Q3

REPORT INFORMATION
  Report Type: Report from Study
  Country: IE (occurrence: IE)
  Receive Date: 20200701
  Receipt Date: 20200805
  Transmission Date: 20201103
  Serious: Yes (Hospitalization)
  Sender: FDA-Public Use
  Company Number: IE-CLOVIS ONCOLOGY-CLO-2020-001185

PATIENT

DRUGS (1)
  1. RUCAPARIB [Suspect]
     Active Substance: RUCAPARIB
     Indication: HORMONE-REFRACTORY PROSTATE CANCER
     Dosage: 600 MG, BID
     Route: 048
     Dates: start: 20191010, end: 20200624

REACTIONS (3)
  - Anaemia [Not Recovered/Not Resolved]
  - Haematuria [Recovered/Resolved]
  - Urinary retention [Not Recovered/Not Resolved]

NARRATIVE: CASE EVENT DATE: 20200623
